FAERS Safety Report 9413253 (Version 1)
Quarter: 2013Q3

REPORT INFORMATION
  Report Type: Spontaneous
  Country: None (occurrence: None)
  Receive Date: 20130709
  Receipt Date: 20130709
  Transmission Date: 20140515
  Serious: Yes (Hospitalization)
  Sender: FDA-Public Use
  Company Number: 08-AUR-05168

PATIENT
  Age: 76 Year
  Sex: Male

DRUGS (4)
  1. ATENOLOL (ATENOLOL) [Suspect]
     Indication: HYPERTENSION
     Dosage: 50 MG 1 IN 1 D
  2. THALIDOMIDE (THALIDOMIDE) [Suspect]
     Indication: PLASMA CELL MYELOMA
     Dosage: 100 MG 1 IN 1 D
  3. FUROSEMIDE (FUROSEMIDE) [Concomitant]
  4. HYDROCHLORTHIAZIDE (HYDORCHLORTHIAZIDE) [Concomitant]

REACTIONS (6)
  - Syncope [None]
  - Pancytopenia [None]
  - Sinus bradycardia [None]
  - Oedema [None]
  - Blood pressure diastolic decreased [None]
  - Left ventricular hypertrophy [None]
